FAERS Safety Report 6371434-3 (Version None)
Quarter: 2009Q3

REPORT INFORMATION
  Report Type: 
  Country: None (occurrence: None)
  Receive Date: 20090923
  Receipt Date: 20070727
  Transmission Date: 20100115
  Serious: Yes (Disabling)
  Sender: FDA-Public Use
  Company Number: US-ASTRAZENECA-2007UW08956

PATIENT
  Sex: Male
  Weight: 133 kg

DRUGS (14)
  1. SEROQUEL [Suspect]
     Route: 048
  2. ZYPREXA [Concomitant]
     Route: 048
     Dates: end: 20030101
  3. LASIX [Concomitant]
     Dosage: 20 QD
     Route: 065
  4. METHADONE [Concomitant]
     Indication: PAIN
     Dosage: 30 MG IN THE AM AND 20 MG IN THE PM
     Route: 065
  5. BRETHINE [Concomitant]
     Route: 065
  6. GLUCOTROL [Concomitant]
     Indication: DIABETES MELLITUS
     Route: 048
  7. GLUCOTROL [Concomitant]
     Route: 048
  8. RISPERDAL [Concomitant]
     Route: 048
  9. RISPERDAL [Concomitant]
     Route: 048
  10. NEURONTIN [Concomitant]
     Dosage: DOSE TAPPERED FROM 1800 TO 300 MG PER DAY
     Route: 048
  11. EFFEXOR [Concomitant]
     Route: 048
  12. ATIVAN [Concomitant]
     Indication: ANXIETY
     Dosage: 1 MG Q A.M AND 2 MG QHS
     Route: 065
  13. ALBUTEROL [Concomitant]
     Dosage: TWO PUFFS UPTO FOUR TIMES DAILY
     Route: 065
  14. FLEXERIL [Concomitant]
     Route: 065

REACTIONS (1)
  - DIABETES MELLITUS [None]
